FAERS Safety Report 13551086 (Version 1)
Quarter: 2017Q2

REPORT INFORMATION
  Report Type: Other
  Country: None (occurrence: US)
  Receive Date: 20170516
  Receipt Date: 20170516
  Transmission Date: 20170830
  Serious: Yes (Other)
  Sender: FDA-Public Use
  Company Number: US-GUTHY-RENKER LLC-2020822

PATIENT
  Age: 76 Year
  Sex: Female

DRUGS (2)
  1. IT COSMETICS BYE BYE FOUNDATION SPF 50+ [Suspect]
     Active Substance: TITANIUM DIOXIDE\ZINC OXIDE
     Indication: PROPHYLAXIS AGAINST SOLAR RADIATION
     Route: 061
     Dates: start: 20170330, end: 20170419
  2. UNDISCLOSED CANCER MEDICATIONS [Concomitant]

REACTIONS (5)
  - Laryngeal oedema [Recovering/Resolving]
  - Dyspnoea [None]
  - Throat tightness [None]
  - Speech disorder [None]
  - Tracheal oedema [None]

NARRATIVE: CASE EVENT DATE: 20170419
